FAERS Safety Report 18489541 (Version 1)
Quarter: 2020Q4

REPORT INFORMATION
  Report Type: Spontaneous
  Country: US (occurrence: US)
  Receive Date: 20201110
  Receipt Date: 20201110
  Transmission Date: 20210114
  Serious: Yes (Life-Threatening, Hospitalization, Disabling, Other)
  Sender: FDA-Public Use
  Company Number: None

PATIENT
  Age: 90 Year
  Sex: Male
  Weight: 72.57 kg

DRUGS (11)
  1. IRBASARTIN [Concomitant]
  2. ATORVASTATIN [Concomitant]
     Active Substance: ATORVASTATIN
  3. AMLODIPINE [Concomitant]
     Active Substance: AMLODIPINE BESYLATE
  4. GABAPENTIN. [Concomitant]
     Active Substance: GABAPENTIN
  5. METFORMIN [Concomitant]
     Active Substance: METFORMIN HYDROCHLORIDE
  6. PANTOPRAZOLE [Concomitant]
     Active Substance: PANTOPRAZOLE
  7. ASPIRIN 81MG [Concomitant]
     Active Substance: ASPIRIN
  8. GLYXAMBI [Suspect]
     Active Substance: EMPAGLIFLOZIN\LINAGLIPTIN
     Indication: TYPE 2 DIABETES MELLITUS
     Dosage: ?          OTHER STRENGTH:10MG/5MG;QUANTITY:1 PILL;?
     Route: 048
     Dates: end: 20201008
  9. CELEBREX [Concomitant]
     Active Substance: CELECOXIB
  10. NEBIVOLOL. [Concomitant]
     Active Substance: NEBIVOLOL
  11. VIT D [Concomitant]
     Active Substance: VITAMIN D NOS

REACTIONS (2)
  - Urinary tract infection [None]
  - Fournier^s gangrene [None]

NARRATIVE: CASE EVENT DATE: 20201008
